FAERS Safety Report 7672889-4 (Version None)
Quarter: 2011Q3

REPORT INFORMATION
  Report Type: 
  Country: None (occurrence: None)
  Receive Date: 20110809
  Receipt Date: 20110729
  Transmission Date: 20111222
  Serious: Yes (Other)
  Sender: FDA-Public Use
  Company Number: BR-GENENTECH-319150

PATIENT
  Sex: Female
  Weight: 68 kg

DRUGS (2)
  1. RITUXIMAB [Suspect]
     Indication: ARTHRITIS
     Dosage: UNK
     Route: 042
     Dates: start: 20101001, end: 20101001
  2. ASPIRIN [Suspect]
     Indication: PRODUCT USED FOR UNKNOWN INDICATION
     Dosage: UNK
     Route: 065
     Dates: start: 20110101, end: 20110101

REACTIONS (3)
  - MYOCARDIAL INFARCTION [None]
  - RENAL DISORDER [None]
  - GASTRIC DISORDER [None]
